FAERS Safety Report 18958829 (Version 6)
Quarter: 2021Q2

REPORT INFORMATION
  Report Type: Report from Study
  Country: JP (occurrence: JP)
  Receive Date: 20210302
  Receipt Date: 20210503
  Transmission Date: 20210717
  Serious: Yes (Hospitalization)
  Sender: FDA-Public Use
  Company Number: JP-ROCHE-2776908

PATIENT
  Age: 70 Year
  Sex: Male
  Weight: 79.8 kg

DRUGS (11)
  1. BEVACIZUMAB. [Suspect]
     Active Substance: BEVACIZUMAB
     Indication: HEPATOCELLULAR CARCINOMA
     Route: 042
     Dates: start: 20210210
  2. METFORMIN HYDROCHLORIDE. [Concomitant]
     Active Substance: METFORMIN HYDROCHLORIDE
     Indication: TYPE 2 DIABETES MELLITUS
     Dosage: BEFORE CONSENT TO CLINICAL TRIAL ? ONGOING
  3. FEXOFENADINE HYDROCHLORIDE. [Concomitant]
     Active Substance: FEXOFENADINE HYDROCHLORIDE
     Indication: SEASONAL ALLERGY
     Route: 048
     Dates: start: 20210215
  4. JANUVIA [Concomitant]
     Active Substance: SITAGLIPTIN PHOSPHATE
     Indication: TYPE 2 DIABETES MELLITUS
     Dosage: BEFORE CONSENT TO CLINICAL TRIAL ? ONGOING
     Route: 048
  5. SILODOSIN. [Concomitant]
     Active Substance: SILODOSIN
     Indication: BENIGN PROSTATIC HYPERPLASIA
     Dosage: BEFORE CONSENT TO CLINICAL TRIAL ? ONGOING
     Route: 048
  6. OBP 301 [Suspect]
     Active Substance: SURATADENOTUREV
     Indication: HEPATOCELLULAR CARCINOMA
     Dosage: 1 X 10 12 VIRAL PARTICLES/ML (IT IS POSSIBLE TO DILUTE IT TO 10ML OR LESS WITH THE VIRAL PARTICLES
     Route: 036
     Dates: start: 20210203
  7. BUFFERIN (JAPAN) [Concomitant]
     Dosage: BEFORE CONSENT TO CLINICAL TRIAL? ONGOING
     Route: 048
  8. TELMISARTAN. [Concomitant]
     Active Substance: TELMISARTAN
     Indication: HYPERTENSION
     Dosage: BEFORE CONSENT TO CLINICAL TRIAL ? ONGOING
     Route: 048
  9. VESICARE [Concomitant]
     Active Substance: SOLIFENACIN SUCCINATE
     Indication: BENIGN PROSTATIC HYPERPLASIA
     Dosage: BEFORE CONSENT TO CLINICAL TRIAL? ONGOING
     Route: 048
  10. AMLODIPINE [Concomitant]
     Active Substance: AMLODIPINE BESYLATE
     Indication: HYPERTENSION
     Dosage: BEFORE CONSENT TO CLINICAL TRIAL  ONGOING
     Route: 048
  11. ATEZOLIZUMAB. [Suspect]
     Active Substance: ATEZOLIZUMAB
     Indication: HEPATOCELLULAR CARCINOMA
     Route: 042
     Dates: start: 20210210

REACTIONS (2)
  - Pyrexia [Recovered/Resolved]
  - Hepatic function abnormal [Recovered/Resolved]

NARRATIVE: CASE EVENT DATE: 20210217
